FAERS Safety Report 21950448 (Version 1)
Quarter: 2023Q1

REPORT INFORMATION
  Report Type: Spontaneous
  Country: DE (occurrence: DE)
  Receive Date: 20230203
  Receipt Date: 20230203
  Transmission Date: 20230417
  Serious: Yes (Death, Other)
  Sender: FDA-Public Use
  Company Number: DE-NOVOPROD-1018011

PATIENT
  Sex: Female

DRUGS (2)
  1. PROTAPHANE [Suspect]
     Active Substance: INSULIN HUMAN
     Indication: Type 1 diabetes mellitus
     Dosage: 16 IE- 0-8 IE
     Route: 064
  2. INSULIN LISPRO [Concomitant]
     Active Substance: INSULIN LISPRO
     Indication: Type 1 diabetes mellitus
     Dosage: UNK
     Route: 064

REACTIONS (3)
  - Cardiac failure [Fatal]
  - Foetal arrhythmia [Fatal]
  - Foetal exposure during pregnancy [Recovered/Resolved]
